FAERS Safety Report 7429983-2 (Version None)
Quarter: 2011Q2

REPORT INFORMATION
  Report Type: 
  Country: None (occurrence: None)
  Receive Date: 20110421
  Receipt Date: 20110418
  Transmission Date: 20111010
  Serious: Yes (Hospitalization, Other)
  Sender: FDA-Public Use
  Company Number: US-PFIZER INC-2011011021

PATIENT
  Sex: Male

DRUGS (3)
  1. CHANTIX [Suspect]
     Indication: SMOKING CESSATION THERAPY
     Dosage: STARTING PACK
     Dates: start: 20080718, end: 20080821
  2. CHANTIX [Suspect]
     Dosage: MAINTENANCE PACK
     Dates: start: 20080822, end: 20080922
  3. CHANTIX [Suspect]
     Dosage: UNK
     Dates: end: 20090101

REACTIONS (6)
  - INTENTIONAL OVERDOSE [None]
  - DEPRESSION [None]
  - NIGHTMARE [None]
  - INSOMNIA [None]
  - SUICIDE ATTEMPT [None]
  - AGGRESSION [None]
